FAERS Safety Report 12523582 (Version 1)
Quarter: 2016Q3

REPORT INFORMATION
  Report Type: Spontaneous
  Country: US (occurrence: US)
  Receive Date: 20160703
  Receipt Date: 20160703
  Transmission Date: 20161109
  Serious: No
  Sender: FDA-Public Use
  Company Number: US-ASTRAZENECA-2016SE61410

PATIENT
  Sex: Male
  Weight: 81.2 kg

DRUGS (4)
  1. METHADONE [Concomitant]
     Active Substance: METHADONE HYDROCHLORIDE
     Indication: ILL-DEFINED DISORDER
     Route: 065
  2. METHADONE [Concomitant]
     Active Substance: METHADONE HYDROCHLORIDE
     Indication: PAIN
     Route: 065
  3. MOVANTIK [Suspect]
     Active Substance: NALOXEGOL OXALATE
     Indication: CONSTIPATION
     Dosage: 25.0MG INTERMITTENT
     Route: 048
  4. METHADONE [Concomitant]
     Active Substance: METHADONE HYDROCHLORIDE
     Indication: SCIATICA
     Route: 065

REACTIONS (7)
  - Hot flush [Unknown]
  - Feeling cold [Unknown]
  - Rhinorrhoea [Unknown]
  - Weight decreased [Unknown]
  - Bone pain [Unknown]
  - Vomiting [Unknown]
  - Diarrhoea [Unknown]
